FAERS Safety Report 8070365-0 (Version None)
Quarter: 2011Q4

REPORT INFORMATION
  Report Type: 
  Country: None (occurrence: None)
  Receive Date: 20111221
  Receipt Date: 20110819
  Transmission Date: 20120403
  Serious: Yes (Hospitalization)
  Sender: FDA-Public Use
  Company Number: PHEH2011US02271

PATIENT
  Age: 36 Year
  Sex: Female

DRUGS (1)
  1. EXJADE [Suspect]
     Dosage: 1000 MG, BID, ORAL
     Route: 048

REACTIONS (2)
  - ASTHENIA [None]
  - SICKLE CELL ANAEMIA WITH CRISIS [None]
